FAERS Safety Report 4812238-X (Version None)
Quarter: 2005Q4

REPORT INFORMATION
  Report Type: 
  Country: None (occurrence: None)
  Receive Date: 20051028
  Receipt Date: 20040924
  Transmission Date: 20060501
  Serious: No
  Sender: FDA-Public Use
  Company Number: US-GLAXOSMITHKLINE-A0527282A

PATIENT
  Age: 83 Year
  Sex: Female

DRUGS (9)
  1. ADVAIR DISKUS 100/50 [Suspect]
     Indication: CHRONIC OBSTRUCTIVE PULMONARY DISEASE
     Dosage: 1PUFF TWICE PER DAY
     Route: 055
     Dates: start: 20040501
  2. PREVACID [Concomitant]
  3. MIACALCIN [Concomitant]
  4. DIOVAN [Concomitant]
  5. ALPHAGAN [Concomitant]
  6. PLAVIX [Concomitant]
  7. MOBIC [Concomitant]
  8. BUSPAR [Concomitant]
  9. ZOLOFT [Concomitant]

REACTIONS (1)
  - ORAL PAIN [None]
